FAERS Safety Report 6035100-6 (Version None)
Quarter: 2009Q1

REPORT INFORMATION
  Report Type: 
  Country: None (occurrence: None)
  Receive Date: 20090112
  Receipt Date: 20090102
  Transmission Date: 20090719
  Serious: No
  Sender: FDA-Public Use
  Company Number: US-B.I. PHARMACEUTICALS,INC./RIDGEFIELD-2009-BP-00099BP

PATIENT
  Age: 59 Year
  Sex: Female

DRUGS (3)
  1. SPIRIVA [Suspect]
     Indication: LUNG DISORDER
     Dosage: 18MCG
     Route: 055
     Dates: start: 20040101
  2. DIOVAN [Concomitant]
     Indication: HYPERTENSION
  3. ADVAIR DISKUS 250/50 [Concomitant]
     Indication: LUNG DISORDER

REACTIONS (4)
  - DYSGEUSIA [None]
  - NAUSEA [None]
  - RETCHING [None]
  - RHINORRHOEA [None]
